FAERS Safety Report 11697502 (Version 1)
Quarter: 2015Q4

REPORT INFORMATION
  Report Type: Spontaneous
  Country: US (occurrence: US)
  Receive Date: 20151104
  Receipt Date: 20151104
  Transmission Date: 20160304
  Serious: No
  Sender: FDA-Public Use
  Company Number: US-PFIZER INC-2015060986

PATIENT
  Age: 75 Year
  Sex: Female
  Weight: 68 kg

DRUGS (12)
  1. JANUVIA [Concomitant]
     Active Substance: SITAGLIPTIN PHOSPHATE
     Dosage: 100 MG, DAILY
  2. ORENITRAM [Concomitant]
     Active Substance: TREPROSTINIL
     Indication: PULMONARY HYPERTENSION
     Dosage: 1 MG, 2X/DAY
     Route: 048
  3. PRAVASTATIN SODIUM. [Concomitant]
     Active Substance: PRAVASTATIN SODIUM
     Dosage: 40 MG, 1X/DAY (40MG 1 TABLET AT BEDTIME)
  4. TORSEMIDE. [Concomitant]
     Active Substance: TORSEMIDE
     Dosage: 20 MG, 2X/DAY (20MG 3 TABS BY MOUTH TWO TIMES A DAY)
     Route: 048
  5. REVATIO [Suspect]
     Active Substance: SILDENAFIL CITRATE
     Indication: PULMONARY HYPERTENSION
     Dosage: 20 MG, 3X/DAY
     Route: 048
  6. AMIODARONE HCL [Concomitant]
     Active Substance: AMIODARONE HYDROCHLORIDE
     Dosage: 100 MG, DAILY (200 MG; 1/2 TABLET DAILY)
  7. METFORMIN HCL [Concomitant]
     Active Substance: METFORMIN HYDROCHLORIDE
     Dosage: 1000 MG, 2X/DAY
  8. ORENITRAM [Concomitant]
     Active Substance: TREPROSTINIL
     Dosage: 1 MG, 4X/DAY (25MG TAKES 1MG 4 TIMES DAILY)
  9. METOPROLOL SUCCINATE. [Concomitant]
     Active Substance: METOPROLOL SUCCINATE
     Dosage: 50 MG 1/2 TABLET DAILY
  10. EPLERENONE. [Concomitant]
     Active Substance: EPLERENONE
     Dosage: 25 MG, DAILY,(25MG 1 TAB BY MOUTH IN AM 30-60MIN PRIOR TO TORSEMIDE)
     Route: 048
  11. ALLOPURINOL. [Concomitant]
     Active Substance: ALLOPURINOL
     Dosage: 100 MG, 1X/DAY
  12. PRADAXA [Concomitant]
     Active Substance: DABIGATRAN ETEXILATE MESYLATE
     Indication: PULMONARY HYPERTENSION
     Dosage: 75 MG, 2X/DAY

REACTIONS (3)
  - Drug ineffective [Unknown]
  - Amnesia [Unknown]
  - Expired product administered [Unknown]
